FAERS Safety Report 8512968-2 (Version None)
Quarter: 2012Q3

REPORT INFORMATION
  Report Type: 
  Country: None (occurrence: None)
  Receive Date: 20120716
  Receipt Date: 20120706
  Transmission Date: 20120928
  Serious: Yes (Disabling, Other)
  Sender: FDA-Public Use
  Company Number: US-ABBOTT-12P-163-0953802-00

PATIENT
  Sex: Male

DRUGS (2)
  1. LEXAPRO [Concomitant]
     Indication: PRODUCT USED FOR UNKNOWN INDICATION
  2. HUMIRA [Suspect]
     Indication: PSORIASIS
     Route: 058
     Dates: start: 20090101

REACTIONS (4)
  - PARKINSON'S DISEASE [None]
  - MULTIPLE SYSTEM ATROPHY [None]
  - TREMOR [None]
  - ASTHENIA [None]
